FAERS Safety Report 9162773 (Version 3)
Quarter: 2013Q1

REPORT INFORMATION
  Report Type: Spontaneous
  Country: FR (occurrence: None)
  Receive Date: 20130225
  Receipt Date: 20130307
  Transmission Date: 20140127
  Serious: Yes (Hospitalization, Other)
  Sender: FDA-Public Use
  Company Number: FR-010949

PATIENT
  Age: 84 Year
  Sex: Male

DRUGS (1)
  1. DEGARELIX [Suspect]
     Indication: PROSTATE CANCER
     Dosage: (03/??/2012 TO CONTINUING)?
     Route: 058
     Dates: start: 20120308

REACTIONS (2)
  - Injection site abscess [None]
  - Sepsis [None]
